FAERS Safety Report 13338423 (Version 1)
Quarter: 2017Q1

REPORT INFORMATION
  Report Type: Spontaneous
  Country: GB (occurrence: GB)
  Receive Date: 20170315
  Receipt Date: 20170315
  Transmission Date: 20170428
  Serious: Yes (Other)
  Sender: FDA-Public Use
  Company Number: GB-PFIZER INC-2017107744

PATIENT
  Age: 27 Year
  Sex: Female
  Weight: 68 kg

DRUGS (2)
  1. SULFASALAZINE. [Suspect]
     Active Substance: SULFASALAZINE
     Dosage: UNK
     Dates: start: 20170228
  2. CERELLE [Concomitant]
     Active Substance: DESOGESTREL
     Indication: CONTRACEPTION
     Dosage: 1 DF, 1X/DAY (AS DIRECTED)
     Dates: start: 20160304

REACTIONS (3)
  - Malaise [Unknown]
  - Pyrexia [Recovering/Resolving]
  - Headache [Unknown]

NARRATIVE: CASE EVENT DATE: 20170228
